FAERS Safety Report 17574154 (Version 1)
Quarter: 2020Q1

REPORT INFORMATION
  Report Type: Spontaneous
  Country: US (occurrence: US)
  Receive Date: 20200323
  Receipt Date: 20200323
  Transmission Date: 20200409
  Serious: No
  Sender: FDA-Public Use
  Company Number: US-TEVA-2020-US-1208934

PATIENT

DRUGS (1)
  1. CINACALCET. [Suspect]
     Active Substance: CINACALCET
     Indication: HYPERPARATHYROIDISM SECONDARY
     Dosage: A SUSPENSION OF CINACALCET WAS PREPARED BY CRUSHING A 30MG TABLET AND DISSOLVED IT IN 10ML OF WATER
     Route: 048

REACTIONS (2)
  - Hypocalcaemia [Unknown]
  - Off label use [Unknown]
